FAERS Safety Report 22867003 (Version 5)
Quarter: 2025Q3

REPORT INFORMATION
  Report Type: Spontaneous
  Country: JP (occurrence: JP)
  Receive Date: 20230825
  Receipt Date: 20250916
  Transmission Date: 20251021
  Serious: Yes (Death, Hospitalization)
  Sender: ROCHE
  Company Number: JP-CHUGAI-2023030216AA

PATIENT
  Age: 74 Year
  Sex: Female
  Weight: 56.5 kg

DRUGS (3)
  1. TECENTRIQ [Suspect]
     Active Substance: ATEZOLIZUMAB
     Indication: Small cell lung cancer extensive stage
     Route: 042
     Dates: start: 20230307, end: 20230613
  2. CARBOPLATIN [Concomitant]
     Active Substance: CARBOPLATIN
     Indication: Small cell lung cancer extensive stage
     Dosage: 250 MILLIGRAM, ONCE/4WEEKS, 350 MG (ONLY FOR THE FIRST TIME)
     Route: 042
     Dates: start: 20230307, end: 20230613
  3. ETOPOSIDE [Concomitant]
     Active Substance: ETOPOSIDE
     Indication: Small cell lung cancer extensive stage
     Dosage: 100 MILLIGRAM, ONCE/4WEEKS, 140 MG (ONLY FOR THE FIRST TIME)
     Route: 042
     Dates: start: 20230307, end: 20230613

REACTIONS (5)
  - Cholangitis [Recovering/Resolving]
  - Myasthenia gravis [Recovering/Resolving]
  - Myositis [Recovering/Resolving]
  - Hepatitis [Unknown]
  - Small cell lung cancer extensive stage [Fatal]

NARRATIVE: CASE EVENT DATE: 20230811
